FAERS Safety Report 18296614 (Version 1)
Quarter: 2020Q3

REPORT INFORMATION
  Report Type: Report from Study
  Country: US (occurrence: US)
  Receive Date: 20200922
  Receipt Date: 20200922
  Transmission Date: 20201103
  Serious: Yes (Other)
  Sender: FDA-Public Use
  Company Number: US-MYLANLABS-2020M1080448

PATIENT
  Age: 38 Year
  Sex: Female

DRUGS (4)
  1. CABERGOLINE. [Suspect]
     Active Substance: CABERGOLINE
     Dosage: FOUR WEEKS POSTPARTUM, COMBINATION THERAPY..
     Route: 065
     Dates: start: 2007
  2. CABERGOLINE. [Suspect]
     Active Substance: CABERGOLINE
     Indication: ACROMEGALY
     Dosage: 2 MILLIGRAM, QW
     Route: 065
     Dates: start: 2007
  3. PEGVISOMANT [Suspect]
     Active Substance: PEGVISOMANT
     Indication: ACROMEGALY
     Dosage: 10 MILLIGRAM, QD
     Route: 058
     Dates: start: 2007
  4. PEGVISOMANT [Suspect]
     Active Substance: PEGVISOMANT
     Dosage: 20 MILLIGRAM, QD, FOUR WEEKS POSTPARTUM
     Route: 058

REACTIONS (3)
  - Normal newborn [Recovered/Resolved]
  - Maternal exposure during pregnancy [Recovered/Resolved]
  - Drug ineffective [Unknown]
